FAERS Safety Report 14585687 (Version 2)
Quarter: 2018Q2

REPORT INFORMATION
  Report Type: Other
  Country: IT (occurrence: IT)
  Receive Date: 20180301
  Receipt Date: 20180422
  Transmission Date: 20180711
  Serious: Yes (Other)
  Sender: FDA-Public Use
  Company Number: IT-APOTEX-2018AP007138

PATIENT
  Age: 83 Year
  Sex: Female

DRUGS (4)
  1. CARDURA [Concomitant]
     Active Substance: DOXAZOSIN MESYLATE
     Indication: PRODUCT USED FOR UNKNOWN INDICATION
     Dosage: 2 MG DAILY
     Route: 065
  2. VASORETIC [Suspect]
     Active Substance: ENALAPRIL MALEATE\HYDROCHLOROTHIAZIDE
     Indication: HYPERTENSION
     Dosage: 1 DF DAILY
     Route: 048
  3. TRITTICO [Concomitant]
     Active Substance: TRAZODONE HYDROCHLORIDE
     Indication: PRODUCT USED FOR UNKNOWN INDICATION
     Dosage: 15 DROPS AS NECESSARY
     Route: 048
  4. QUETIAPINE. [Suspect]
     Active Substance: QUETIAPINE
     Indication: SEDATIVE THERAPY
     Dosage: 300 MG DAILY
     Route: 048

REACTIONS (4)
  - Injury [Recovering/Resolving]
  - Hypotension [Recovering/Resolving]
  - Drug abuse [Unknown]
  - Presyncope [Recovering/Resolving]

NARRATIVE: CASE EVENT DATE: 20161129
